FAERS Safety Report 19481600 (Version 2)
Quarter: 2021Q3

REPORT INFORMATION
  Report Type: Spontaneous
  Country: JP (occurrence: JP)
  Receive Date: 20210701
  Receipt Date: 20210729
  Transmission Date: 20211014
  Serious: Yes (Hospitalization, Other)
  Sender: FDA-Public Use
  Company Number: JP-GLAXOSMITHKLINE-JP2021125736

PATIENT
  Age: 38 Year
  Sex: Male
  Weight: 57 kg

DRUGS (9)
  1. AMOBAN TABLETS [Concomitant]
     Indication: SLEEP DISORDER
     Dosage: 10 MG, 1D
     Route: 048
     Dates: start: 20180213
  2. DEPAKENE?R [Suspect]
     Active Substance: VALPROATE SODIUM
     Indication: BIPOLAR DISORDER
     Dosage: UNK
     Route: 048
     Dates: start: 20181030
  3. DEPAKENE?R [Suspect]
     Active Substance: VALPROATE SODIUM
     Dosage: UNK
     Dates: start: 20210324
  4. LAMICTAL [Suspect]
     Active Substance: LAMOTRIGINE
     Indication: BIPOLAR DISORDER
     Dosage: 25 MG, QOD
     Route: 048
     Dates: start: 20210222, end: 20210307
  5. DEPAKENE?R [Suspect]
     Active Substance: VALPROATE SODIUM
     Dosage: 1200 MG, 1D
     Route: 048
     Dates: start: 20190514, end: 20210322
  6. MYSLEE TABLETS [Concomitant]
     Indication: SLEEP DISORDER
     Dosage: 8.75 MG, 1D
     Route: 048
     Dates: start: 20210324
  7. LAMICTAL [Suspect]
     Active Substance: LAMOTRIGINE
     Dosage: 25 MG, QD
     Route: 048
     Dates: start: 20210308, end: 20210319
  8. ABILIFY [Concomitant]
     Active Substance: ARIPIPRAZOLE
     Indication: BIPOLAR DISORDER
     Dosage: 3 MG, 1D
     Dates: start: 20201106
  9. QUETIAPINE FUMARATE TABLET [Concomitant]
     Active Substance: QUETIAPINE FUMARATE
     Indication: SLEEP DISORDER
     Dosage: 50 MG, 1D
     Route: 048
     Dates: start: 20200703, end: 20210308

REACTIONS (4)
  - Stomatitis [Recovered/Resolved]
  - Drug eruption [Recovered/Resolved]
  - Pyrexia [Recovered/Resolved]
  - Mental impairment [Unknown]

NARRATIVE: CASE EVENT DATE: 202103
